FAERS Safety Report 16282866 (Version 1)
Quarter: 2019Q2

REPORT INFORMATION
  Report Type: Spontaneous
  Country: DE (occurrence: DE)
  Receive Date: 20190507
  Receipt Date: 20190507
  Transmission Date: 20190711
  Serious: Yes (Other)
  Sender: FDA-Public Use
  Company Number: DE-ASTRAZENECA-2019SE68856

PATIENT
  Age: 41 Year
  Sex: Male

DRUGS (8)
  1. XOLAIR [Concomitant]
     Active Substance: OMALIZUMAB
  2. PREDNISOLON [Concomitant]
     Active Substance: PREDNISOLONE
  3. SALBUTAMOL [Concomitant]
     Active Substance: ALBUTEROL
  4. SPIRIVA RESPIMAT [Concomitant]
     Active Substance: TIOTROPIUM BROMIDE
  5. LORANO [Concomitant]
  6. SYMBICORT [Suspect]
     Active Substance: BUDESONIDE\FORMOTEROL FUMARATE DIHYDRATE
     Indication: ASTHMA
     Dosage: 160/4.5 TWO TIMES A DAY
     Route: 055
  7. SYMBICORT [Suspect]
     Active Substance: BUDESONIDE\FORMOTEROL FUMARATE DIHYDRATE
     Indication: ASTHMA
     Dosage: 320/9 TWO TIMES A DAY
     Route: 055
  8. MONTELUKAST [Concomitant]
     Active Substance: MONTELUKAST SODIUM

REACTIONS (10)
  - Forced expiratory volume abnormal [Unknown]
  - Blood immunoglobulin E abnormal [Unknown]
  - Lung infection [Unknown]
  - Physical disability [Unknown]
  - Functional residual capacity abnormal [Unknown]
  - Weight increased [Unknown]
  - Cough [Unknown]
  - Eosinophil count increased [Unknown]
  - Obstruction [Unknown]
  - Weight decreased [Unknown]
